FAERS Safety Report 18631918 (Version 2)
Quarter: 2020Q4

REPORT INFORMATION
  Report Type: Spontaneous
  Country: AU (occurrence: AU)
  Receive Date: 20201217
  Receipt Date: 20201227
  Transmission Date: 20210114
  Serious: Yes (Other)
  Sender: FDA-Public Use
  Company Number: AU-JNJFOC-20201227561

PATIENT
  Age: 41 Year
  Sex: Female

DRUGS (1)
  1. REMICADE [Suspect]
     Active Substance: INFLIXIMAB
     Indication: COLITIS ULCERATIVE
     Route: 042

REACTIONS (3)
  - Drug intolerance [Unknown]
  - Lupus-like syndrome [Unknown]
  - Therapy non-responder [Unknown]
